FAERS Safety Report 4498854-6 (Version None)
Quarter: 2004Q4

REPORT INFORMATION
  Report Type: 
  Country: None (occurrence: None)
  Receive Date: 20041108
  Receipt Date: 20041027
  Transmission Date: 20050328
  Serious: Yes (Hospitalization)
  Sender: FDA-Public Use
  Company Number: HQWYE159428OCT04

PATIENT
  Age: 70 Year
  Sex: Female

DRUGS (6)
  1. ADVIL [Suspect]
     Route: 048
  2. OXACILLIN [Suspect]
     Dosage: 500 MG
     Route: 048
     Dates: start: 20040902, end: 20040919
  3. FLAMMAZINE (SULFADIAZINE SILVER,) [Suspect]
     Route: 061
     Dates: start: 20040902, end: 20040918
  4. FUNGIZONE [Suspect]
     Dosage: 250 MG, FREQUENCY UNKNOWN
     Route: 048
     Dates: start: 20040902, end: 20040919
  5. RIFAMPICIN [Suspect]
     Dosage: 300 MG, FREQUENCY, UNKNOWN
     Route: 048
     Dates: start: 20040902, end: 20040919
  6. PREDNISOLONE [Suspect]
     Dosage: 20MG, FREQUENCY UNKNOWN
     Route: 048
     Dates: start: 20040902, end: 20040919

REACTIONS (5)
  - ALANINE AMINOTRANSFERASE INCREASED [None]
  - ANAEMIA [None]
  - ASPARTATE AMINOTRANSFERASE INCREASED [None]
  - GAMMA-GLUTAMYLTRANSFERASE INCREASED [None]
  - NEPHRITIS INTERSTITIAL [None]
